FAERS Safety Report 5919068-6 (Version None)
Quarter: 2008Q3

REPORT INFORMATION
  Report Type: 
  Country: None (occurrence: None)
  Receive Date: 20080909
  Receipt Date: 20061027
  Transmission Date: 20090109
  Serious: Yes (Death, Hospitalization)
  Sender: FDA-Public Use
  Company Number: 163-20785-06101347

PATIENT
  Age: 18 Year
  Sex: Male

DRUGS (5)
  1. THALOMID [Suspect]
     Indication: GLIOBLASTOMA MULTIFORME
     Dosage: 450 MG, QHS, ORAL
     Route: 048
     Dates: start: 20060705, end: 20060929
  2. ETOPOSIDE [Suspect]
     Indication: GLIOBLASTOMA MULTIFORME
     Dosage: 100 MG, QHS, ORAL
     Route: 048
     Dates: start: 20060705, end: 20060929
  3. CYCLOPHOSPHAMIDE [Suspect]
     Indication: GLIOBLASTOMA MULTIFORME
     Dosage: 100 MG, QHS, ORAL
     Route: 048
     Dates: start: 20060705, end: 20060929
  4. CELECOXIB [Suspect]
     Indication: GLIOBLASTOMA MULTIFORME
     Dosage: 400 MG, BID, ORAL
     Route: 048
     Dates: start: 20060705, end: 20060929
  5. FENOFIBRATE [Suspect]
     Indication: GLIOBLASTOMA MULTIFORME
     Dosage: 193 MG, BID, ORAL
     Route: 048
     Dates: start: 20060705, end: 20060929

REACTIONS (5)
  - DISEASE PROGRESSION [None]
  - GAIT DISTURBANCE [None]
  - GLIOBLASTOMA MULTIFORME [None]
  - HEADACHE [None]
  - SPEECH DISORDER [None]
